FAERS Safety Report 20015363 (Version 1)
Quarter: 2021Q4

REPORT INFORMATION
  Report Type: Spontaneous
  Country: US (occurrence: None)
  Receive Date: 20211029
  Receipt Date: 20211029
  Transmission Date: 20220303
  Serious: Yes (Hospitalization)
  Sender: FDA-Public Use
  Company Number: None

PATIENT
  Age: 95 Year
  Sex: Male

DRUGS (1)
  1. ROSUVASTATIN CALCIUM [Suspect]
     Active Substance: ROSUVASTATIN CALCIUM
     Dosage: FREQUENCY : DAILY;?
     Route: 048
     Dates: start: 20210903, end: 20211002

REACTIONS (4)
  - Fall [None]
  - Rhabdomyolysis [None]
  - Acute kidney injury [None]
  - Mental status changes [None]

NARRATIVE: CASE EVENT DATE: 20211002
